FAERS Safety Report 6556471-8 (Version None)
Quarter: 2010Q1

REPORT INFORMATION
  Report Type: 
  Country: None (occurrence: None)
  Receive Date: 20100128
  Receipt Date: 20100125
  Transmission Date: 20100710
  Serious: Yes (Life-Threatening)
  Sender: FDA-Public Use
  Company Number: DE-MERCK-1001DEU00097

PATIENT
  Age: 50 Year
  Sex: Female

DRUGS (2)
  1. CANCIDAS [Suspect]
     Indication: RESPIRATORY MONILIASIS
     Route: 042
     Dates: start: 20100119, end: 20100125
  2. MOXIFLOXACIN HYDROCHLORIDE [Concomitant]
     Route: 065

REACTIONS (1)
  - LARGE INTESTINE PERFORATION [None]
